FAERS Safety Report 15999615 (Version 1)
Quarter: 2019Q1

REPORT INFORMATION
  Report Type: Report from Study
  Country: CO (occurrence: CO)
  Receive Date: 20190225
  Receipt Date: 20190225
  Transmission Date: 20190418
  Serious: Yes (Death, Hospitalization)
  Sender: FDA-Public Use
  Company Number: CO-JNJFOC-20190138930

PATIENT
  Age: 72 Year
  Sex: Male
  Weight: 64 kg

DRUGS (2)
  1. IMBRUVICA [Suspect]
     Active Substance: IBRUTINIB
     Indication: CHRONIC LYMPHOCYTIC LEUKAEMIA
     Route: 048
     Dates: start: 20190129, end: 20190211
  2. IMBRUVICA [Suspect]
     Active Substance: IBRUTINIB
     Indication: CHRONIC LYMPHOCYTIC LEUKAEMIA
     Route: 048
     Dates: start: 20181122, end: 20181222

REACTIONS (5)
  - Haemoglobin decreased [Unknown]
  - Pneumonia [Recovering/Resolving]
  - Gait inability [Unknown]
  - Cardio-respiratory arrest [Fatal]
  - Eating disorder [Unknown]

NARRATIVE: CASE EVENT DATE: 20190123
